FAERS Safety Report 9785041 (Version 2)
Quarter: 2014Q1

REPORT INFORMATION
  Report Type: Spontaneous
  Country: DE (occurrence: DE)
  Receive Date: 20131227
  Receipt Date: 20140207
  Transmission Date: 20141002
  Serious: Yes (Other)
  Sender: FDA-Public Use
  Company Number: DE-009507513-1312DEU008673

PATIENT
  Age: 47 Year
  Sex: Female
  Weight: 60 kg

DRUGS (2)
  1. IMPLANON [Suspect]
     Indication: CONTRACEPTION
     Dosage: UNK
     Route: 059
     Dates: start: 2009, end: 20140113
  2. IMPLANON [Suspect]
     Dosage: UNK
     Route: 059
     Dates: start: 201303, end: 20131213

REACTIONS (10)
  - Breast cancer [Not Recovered/Not Resolved]
  - Breast cancer metastatic [Unknown]
  - Metastases to lymph nodes [Unknown]
  - Mastectomy [Unknown]
  - Lymphadenectomy [Unknown]
  - General anaesthesia [Unknown]
  - Medical device complication [Recovered/Resolved]
  - Device difficult to use [Recovered/Resolved]
  - Overdose [Unknown]
  - Incorrect drug administration duration [Recovered/Resolved]
